FAERS Safety Report 4374401-4 (Version None)
Quarter: 2004Q2

REPORT INFORMATION
  Report Type: 
  Country: None (occurrence: None)
  Receive Date: 20040602
  Receipt Date: 20040329
  Transmission Date: 20050107
  Serious: No
  Sender: FDA-Public Use
  Company Number: 200416802BWH

PATIENT
  Age: 75 Year
  Sex: Male
  Weight: 80.7403 kg

DRUGS (9)
  1. LEVITRA [Suspect]
     Indication: ERECTILE DYSFUNCTION
     Dosage: 10 MG TOTAL DAILY ORAL
     Route: 048
  2. LEVITRA [Suspect]
     Indication: ERECTILE DYSFUNCTION
     Dosage: 20 MG TOTAL DAILY ORAL
     Route: 048
     Dates: start: 20040328
  3. VIADUR [Concomitant]
  4. COUMADIN [Concomitant]
  5. LANOXIN [Concomitant]
  6. WELLBUTRIN [Concomitant]
  7. REMERON [Concomitant]
  8. ZOLOFT [Concomitant]
  9. CARDURA [Concomitant]

REACTIONS (1)
  - ERECTILE DYSFUNCTION [None]
